FAERS Safety Report 8061178 (Version 3)
Quarter: 2013Q4

REPORT INFORMATION
  Report Type: Spontaneous
  Country: US (occurrence: US)
  Receive Date: 20110729
  Receipt Date: 20131219
  Transmission Date: 20140711
  Serious: Yes (Death, Hospitalization)
  Sender: FDA-Public Use
  Company Number: US-GLAXOSMITHKLINE-A0938683A

PATIENT
  Age: 60 Year
  Sex: Male

DRUGS (1)
  1. AVANDIA [Suspect]
     Indication: DIABETES MELLITUS
     Dosage: 8MG PER DAY
     Route: 048
     Dates: start: 20050715, end: 200809

REACTIONS (5)
  - Respiratory failure [Fatal]
  - Myocardial infarction [Unknown]
  - Cerebrovascular accident [Fatal]
  - Coronary artery disease [Fatal]
  - Ventricular tachycardia [Unknown]
